FAERS Safety Report 7017465-1 (Version None)
Quarter: 2010Q3

REPORT INFORMATION
  Report Type: 
  Country: None (occurrence: None)
  Receive Date: 20100928
  Receipt Date: 20100916
  Transmission Date: 20110219
  Serious: Yes (Other)
  Sender: FDA-Public Use
  Company Number: CN-PFIZER INC-2010112015

PATIENT
  Age: 27 Year
  Sex: Male

DRUGS (1)
  1. SULPERAZON [Suspect]
     Indication: PNEUMONIA
     Dosage: 3 G, 2X/DAY
     Route: 041
     Dates: start: 20100101, end: 20100101

REACTIONS (1)
  - EPILEPSY [None]
